FAERS Safety Report 20644969 (Version 2)
Quarter: 2022Q2

REPORT INFORMATION
  Report Type: Spontaneous
  Country: JP (occurrence: JP)
  Receive Date: 20220328
  Receipt Date: 20220401
  Transmission Date: 20220721
  Serious: Yes (Hospitalization, Other)
  Sender: FDA-Public Use
  Company Number: JP-GLAXOSMITHKLINE-JP2022JPN051898

PATIENT
  Sex: Male

DRUGS (4)
  1. SERETIDE [Suspect]
     Active Substance: FLUTICASONE PROPIONATE\SALMETEROL XINAFOATE
     Indication: Asthma
     Dosage: UNK, BID
  2. DUPILUMAB [Suspect]
     Active Substance: DUPILUMAB
     Indication: Asthma
     Dosage: 600 MG
     Dates: start: 201501
  3. DUPILUMAB [Suspect]
     Active Substance: DUPILUMAB
     Dosage: 300 MG, EVERY 2 WEEKS
  4. PRANLUKAST [Concomitant]
     Active Substance: PRANLUKAST
     Indication: Asthma
     Dosage: 450 MG/DAY

REACTIONS (15)
  - Eosinophilic granulomatosis with polyangiitis [Unknown]
  - Neuropathy peripheral [Unknown]
  - Malaise [Unknown]
  - Fatigue [Unknown]
  - Pyrexia [Unknown]
  - Rash [Unknown]
  - Nasal polyps [Unknown]
  - Chronic eosinophilic rhinosinusitis [Unknown]
  - Pain in extremity [Recovering/Resolving]
  - Hypoaesthesia [Unknown]
  - Masticatory pain [Recovered/Resolved]
  - Obstructive airways disorder [Unknown]
  - Peripheral nerve lesion [Recovering/Resolving]
  - Sensory loss [Recovering/Resolving]
  - Therapeutic response decreased [Unknown]

NARRATIVE: CASE EVENT DATE: 20170601
